FAERS Safety Report 22634791 (Version 5)
Quarter: 2023Q4

REPORT INFORMATION
  Report Type: Spontaneous
  Country: US (occurrence: US)
  Receive Date: 20230623
  Receipt Date: 20231207
  Transmission Date: 20240110
  Serious: Yes (Hospitalization, Other)
  Sender: FDA-Public Use
  Company Number: US-BIOVITRUM-2023-US-011391

PATIENT
  Age: 19 Year
  Sex: Female

DRUGS (1)
  1. KINERET [Suspect]
     Active Substance: ANAKINRA
     Indication: Still^s disease
     Dosage: 100 MG ONCE A DAY/ DAILY
     Route: 058
     Dates: start: 20230505

REACTIONS (11)
  - Sepsis [Unknown]
  - Subclavian vein thrombosis [Unknown]
  - Jugular vein thrombosis [Unknown]
  - Deep vein thrombosis [Unknown]
  - Intentional product misuse [Not Recovered/Not Resolved]
  - Anaemia [Unknown]
  - White blood cell count decreased [Unknown]
  - Injection site urticaria [Unknown]
  - Product dose omission issue [Unknown]
  - Rash [Unknown]
  - Haematological infection [Unknown]

NARRATIVE: CASE EVENT DATE: 20230505
